FAERS Safety Report 25727409 (Version 1)
Quarter: 2025Q3

REPORT INFORMATION
  Report Type: Spontaneous
  Country: GB (occurrence: GB)
  Receive Date: 20250826
  Receipt Date: 20250826
  Transmission Date: 20251021
  Serious: Yes (Hospitalization, Other)
  Sender: BOEHRINGER INGELHEIM
  Company Number: None

PATIENT
  Age: 53 Year

DRUGS (1)
  1. LINAGLIPTIN [Suspect]
     Active Substance: LINAGLIPTIN
     Indication: Product used for unknown indication

REACTIONS (3)
  - Medication error [Unknown]
  - Abdominal pain [Recovering/Resolving]
  - Pancreatitis [Recovered/Resolved]
